FAERS Safety Report 4973048-6 (Version None)
Quarter: 2006Q2

REPORT INFORMATION
  Report Type: 
  Country: None (occurrence: None)
  Receive Date: 20060410
  Receipt Date: 20060320
  Transmission Date: 20061013
  Serious: Yes (Hospitalization, Other)
  Sender: FDA-Public Use
  Company Number: USA0507102219

PATIENT
  Age: 78 Year
  Sex: Female
  Weight: 54.5 kg

DRUGS (6)
  1. HUMALOG [Suspect]
     Indication: DIABETES MELLITUS INSULIN-DEPENDENT
     Dosage: 3 U, AS NEEDED
     Dates: start: 20050501
  2. HUMALOG PEN [Concomitant]
  3. LANTUS [Concomitant]
  4. TIMOLOL MALEATE [Concomitant]
  5. LOTEMAX [Concomitant]
  6. DOXYCYCLINE [Concomitant]

REACTIONS (20)
  - BLEPHARITIS [None]
  - BLINDNESS [None]
  - BLINDNESS TRANSIENT [None]
  - BLOOD GLUCOSE INCREASED [None]
  - CATARACT [None]
  - CONJUNCTIVITIS [None]
  - DEVICE FAILURE [None]
  - DRY EYE [None]
  - EYE IRRITATION [None]
  - EYE PAIN [None]
  - HEADACHE [None]
  - HYPERHIDROSIS [None]
  - HYPOGLYCAEMIA [None]
  - MALAISE [None]
  - OCULAR HYPERAEMIA [None]
  - PALLOR [None]
  - PHARMACEUTICAL PRODUCT COMPLAINT [None]
  - PHOTOPSIA [None]
  - VISUAL ACUITY REDUCED [None]
  - WRONG TECHNIQUE IN DRUG USAGE PROCESS [None]
